FAERS Safety Report 18325447 (Version 2)
Quarter: 2020Q4

REPORT INFORMATION
  Report Type: Spontaneous
  Country: AR (occurrence: AR)
  Receive Date: 20200929
  Receipt Date: 20201014
  Transmission Date: 20210113
  Serious: Yes (Other)
  Sender: FDA-Public Use
  Company Number: AR-PFIZER INC-2020374739

PATIENT
  Age: 70 Year
  Sex: Male

DRUGS (2)
  1. SUTENT [Suspect]
     Active Substance: SUNITINIB MALATE
     Indication: METASTATIC RENAL CELL CARCINOMA
     Dosage: 37.5 MG, DAILY
     Dates: start: 202008, end: 2020
  2. SUTENT [Suspect]
     Active Substance: SUNITINIB MALATE
     Dosage: UNK, CYCLIC (TWO WEEKS AND REST ONE)
     Dates: start: 20200918

REACTIONS (5)
  - Cerebral ischaemia [Unknown]
  - Fatigue [Unknown]
  - Taste disorder [Unknown]
  - Cardiac disorder [Recovered/Resolved]
  - Tongue disorder [Unknown]

NARRATIVE: CASE EVENT DATE: 202008
